FAERS Safety Report 5654847-4 (Version None)
Quarter: 2008Q1

REPORT INFORMATION
  Report Type: 
  Country: None (occurrence: None)
  Receive Date: 20080307
  Receipt Date: 20070806
  Transmission Date: 20080703
  Serious: Yes (Other)
  Sender: FDA-Public Use
  Company Number: A0668996A

PATIENT

DRUGS (3)
  1. REQUIP [Suspect]
     Indication: PARKINSON'S DISEASE
     Dosage: 2MG THREE TIMES PER DAY
     Route: 048
  2. UNSPECIFIED MEDICATIONS [Concomitant]
  3. PARLODEL [Concomitant]

REACTIONS (1)
  - HEPATIC ENZYME INCREASED [None]
